FAERS Safety Report 13577565 (Version 2)
Quarter: 2017Q2

REPORT INFORMATION
  Report Type: Spontaneous
  Country: TW (occurrence: TW)
  Receive Date: 20170524
  Receipt Date: 20170614
  Transmission Date: 20170830
  Serious: Yes (Other)
  Sender: FDA-Public Use
  Company Number: TW-ELI_LILLY_AND_COMPANY-TW201705005170

PATIENT
  Age: 65 Year
  Sex: Female

DRUGS (3)
  1. ATORVASTATIN [Suspect]
     Active Substance: ATORVASTATIN
     Indication: HYPERLIPIDAEMIA
     Dosage: UNK UNK, UNKNOWN
     Route: 065
     Dates: end: 20170509
  2. LAMISIL [Concomitant]
     Active Substance: TERBINAFINE HYDROCHLORIDE
     Indication: ONYCHOMYCOSIS
     Dosage: UNK UNK, UNKNOWN
     Route: 065
     Dates: end: 20170509
  3. DULAGLUTIDE 0.75MG [Suspect]
     Active Substance: DULAGLUTIDE
     Indication: TYPE 2 DIABETES MELLITUS
     Dosage: 0.75 MG, UNKNOWN
     Route: 058
     Dates: start: 20170502, end: 20170509

REACTIONS (14)
  - Gamma-glutamyltransferase increased [Unknown]
  - Nausea [Unknown]
  - Alanine aminotransferase increased [Unknown]
  - Blood alkaline phosphatase increased [Unknown]
  - Blood lactate dehydrogenase increased [Unknown]
  - Asthenia [Unknown]
  - Blood triglycerides increased [Unknown]
  - Neutrophil count increased [Unknown]
  - Lymphocyte percentage decreased [Unknown]
  - Urine leukocyte esterase positive [Unknown]
  - Vomiting [Unknown]
  - Protein urine present [Unknown]
  - Aspartate aminotransferase increased [Unknown]
  - Blood glucose increased [Unknown]

NARRATIVE: CASE EVENT DATE: 20170504
